FAERS Safety Report 16842227 (Version 1)
Quarter: 2019Q3

REPORT INFORMATION
  Report Type: Spontaneous
  Country: DE (occurrence: DE)
  Receive Date: 20190924
  Receipt Date: 20190924
  Transmission Date: 20191005
  Serious: Yes (Other)
  Sender: FDA-Public Use
  Company Number: DE-ABBVIE-19K-062-2924878-00

PATIENT
  Age: 55 Year
  Sex: Male

DRUGS (1)
  1. MAVIRET [Suspect]
     Active Substance: GLECAPREVIR\PIBRENTASVIR
     Indication: CHRONIC HEPATITIS C
     Dosage: 3 TABLETS IN THE MORNING
     Route: 048
     Dates: start: 201906, end: 201908

REACTIONS (2)
  - Blood creatinine increased [Recovered/Resolved]
  - Chronic hepatitis C [Unknown]

NARRATIVE: CASE EVENT DATE: 2019
